FAERS Safety Report 7607369-5 (Version None)
Quarter: 2011Q3

REPORT INFORMATION
  Report Type: 
  Country: None (occurrence: None)
  Receive Date: 20110713
  Receipt Date: 20110706
  Transmission Date: 20111222
  Serious: Yes (Life-Threatening, Hospitalization, Disabling)
  Sender: FDA-Public Use
  Company Number: DK-B.I. PHARMACEUTICALS,INC./RIDGEFIELD-2011-DE-04003DE

PATIENT
  Sex: Male

DRUGS (11)
  1. MAGNYL [Concomitant]
     Indication: MYOCARDIAL INFARCTION
     Dosage: 75 MG
     Route: 048
     Dates: start: 20000323
  2. ALLOPURINOL [Concomitant]
     Indication: GOUTY ARTHRITIS
     Dosage: 300 MG
     Route: 048
     Dates: start: 20031017
  3. BURANA [Concomitant]
     Indication: ARTHRALGIA
     Dosage: 1600 MG
     Route: 048
     Dates: start: 20040104
  4. KALEORID [Concomitant]
     Indication: ELECTROLYTE SUBSTITUTION THERAPY
     Dosage: 1500 MG
     Route: 048
  5. PAMOL [Concomitant]
     Indication: ARTHRALGIA
     Dosage: 4 G
     Route: 048
     Dates: start: 20011207
  6. RAMIPRIL [Concomitant]
     Indication: HEART RATE ABNORMAL
     Dosage: 10 MG
     Route: 048
     Dates: start: 20000323
  7. DABIGATRAN [Suspect]
     Indication: CEREBROVASCULAR ACCIDENT PROPHYLAXIS
     Route: 048
     Dates: start: 20070111, end: 20110622
  8. FUROSEMIDE [Concomitant]
     Indication: PULMONARY CONGESTION
     Dosage: 80 MG
     Route: 048
  9. METFORMIN HCL [Concomitant]
     Indication: TYPE 2 DIABETES MELLITUS
     Dosage: 1000 MG
     Route: 048
     Dates: start: 20110615
  10. METOPROLOL SUCCINATE [Concomitant]
     Indication: HYPERTENSION
     Dosage: 25 MG
     Route: 048
     Dates: start: 20000323
  11. DABIGATRAN [Suspect]
     Indication: ATRIAL FIBRILLATION

REACTIONS (1)
  - GLIOBLASTOMA [None]
